FAERS Safety Report 8911873 (Version 1)
Quarter: 2012Q4

REPORT INFORMATION
  Report Type: 
  Country: JP (occurrence: JP)
  Receive Date: 20121115
  Receipt Date: 20121115
  Transmission Date: 20130627
  Serious: Yes (Other)
  Sender: FDA-Public Use
  Company Number: JP-GLAXOSMITHKLINE-B0843630A

PATIENT
  Age: 56 Year
  Sex: Male

DRUGS (3)
  1. ZOVIRAX [Suspect]
     Indication: PUNCTATE KERATITIS
     Route: 061
  2. VALTREX [Suspect]
     Indication: HERPES ZOSTER
     Route: 048
  3. GATIFLOXACIN [Concomitant]
     Indication: PUNCTATE KERATITIS

REACTIONS (14)
  - Corneal epithelium defect [Recovered/Resolved]
  - Iris atrophy [Not Recovered/Not Resolved]
  - Punctate keratitis [Unknown]
  - Anterior chamber disorder [Unknown]
  - Ulcerative keratitis [Unknown]
  - Corneal infiltrates [Recovering/Resolving]
  - Ciliary hyperaemia [Recovering/Resolving]
  - Conjunctival hyperaemia [Recovering/Resolving]
  - Corneal disorder [Unknown]
  - Corneal oedema [Unknown]
  - Corneal deposits [Unknown]
  - Eye movement disorder [Unknown]
  - Drug resistance [Unknown]
  - Drug ineffective [Unknown]
